FAERS Safety Report 4884601-2 (Version None)
Quarter: 2005Q4

REPORT INFORMATION
  Report Type: 
  Country: None (occurrence: None)
  Receive Date: 20051201
  Receipt Date: 20050919
  Transmission Date: 20060501
  Serious: No
  Sender: FDA-Public Use
  Company Number: 2005PV002329

PATIENT
  Age: 60 Year
  Sex: Female
  Weight: 81.6475 kg

DRUGS (16)
  1. BYETTA [Suspect]
     Indication: DIABETES MELLITUS NON-INSULIN-DEPENDENT
     Dosage: 5 MCG; BID; SC
     Route: 058
     Dates: start: 20050906
  2. ASPIRIN [Concomitant]
  3. LANOXIN [Concomitant]
  4. IMDUR [Concomitant]
  5. PROPRANOLOL [Concomitant]
  6. ENALAPRIL [Concomitant]
  7. STARLIX [Concomitant]
  8. GLUCOPHAGE [Concomitant]
  9. PREMARIN [Concomitant]
  10. MECLIZINE [Concomitant]
  11. LIPITOR [Concomitant]
  12. DITROPAN [Concomitant]
  13. NEURONTIN [Concomitant]
  14. PROZAC [Concomitant]
  15. SEROQUEL [Concomitant]
  16. LASIX [Concomitant]

REACTIONS (5)
  - ABDOMINAL PAIN [None]
  - DIARRHOEA [None]
  - INJECTION SITE HAEMORRHAGE [None]
  - INJECTION SITE PAIN [None]
  - NAUSEA [None]
